FAERS Safety Report 13030563 (Version 2)
Quarter: 2016Q4

REPORT INFORMATION
  Report Type: Spontaneous
  Country: FR (occurrence: FR)
  Receive Date: 20161215
  Receipt Date: 20161219
  Transmission Date: 20170207
  Serious: Yes (Death, Other)
  Sender: FDA-Public Use
  Company Number: FR-PFIZER INC-2016573905

PATIENT
  Age: 87 Year
  Sex: Female

DRUGS (8)
  1. LORAZEPAM. [Concomitant]
     Active Substance: LORAZEPAM
     Dosage: 1 DF, 1X/DAY
  2. SOTALOL. [Concomitant]
     Active Substance: SOTALOL
     Dosage: 160 MG, 2X/DAY
  3. FUROSEMIDE. [Concomitant]
     Active Substance: FUROSEMIDE
     Dosage: 20 MG, DAILY
  4. TAHOR [Suspect]
     Active Substance: ATORVASTATIN CALCIUM
     Dosage: 10 MG, 1X/DAY
     Route: 048
  5. PREVISCAN /00789001/ [Interacting]
     Active Substance: FLUINDIONE
     Dosage: 20 MG, 1X/DAY
     Dates: end: 20161104
  6. TARDYFERON [Concomitant]
     Active Substance: FERROUS SULFATE
     Dosage: 80 MG, 1X/DAY
  7. TRINITRINE [Concomitant]
     Active Substance: NITROGLYCERIN
     Dosage: 1 DF, DAILY
  8. APROVEL [Concomitant]
     Active Substance: IRBESARTAN
     Dosage: 75 MG, 2X/DAY

REACTIONS (8)
  - International normalised ratio increased [Recovered/Resolved]
  - Drug interaction [Fatal]
  - Melaena [Not Recovered/Not Resolved]
  - Thrombocytopenia [Unknown]
  - Weight decreased [Unknown]
  - Anaemia [Not Recovered/Not Resolved]
  - Blood creatinine increased [Unknown]
  - Gastrointestinal haemorrhage [Fatal]

NARRATIVE: CASE EVENT DATE: 20161104
